FAERS Safety Report 8095579-5 (Version None)
Quarter: 2012Q1

REPORT INFORMATION
  Report Type: 
  Country: None (occurrence: None)
  Receive Date: 20120129
  Receipt Date: 20111214
  Transmission Date: 20120608
  Serious: No
  Sender: FDA-Public Use
  Company Number: US-ABBOTT-11P-163-0883712-00

PATIENT
  Sex: Female

DRUGS (1)
  1. HUMIRA [Suspect]
     Indication: CROHN'S DISEASE
     Dosage: 160MG DAY 1, 80MG DAY 15 AS DIRECTED
     Route: 050
     Dates: start: 20111101

REACTIONS (3)
  - BACK PAIN [None]
  - EYE OEDEMA [None]
  - DRY EYE [None]
